FAERS Safety Report 11725227 (Version 1)
Quarter: 2015Q4

REPORT INFORMATION
  Report Type: Spontaneous
  Country: US (occurrence: US)
  Receive Date: 20151111
  Receipt Date: 20151111
  Transmission Date: 20160304
  Serious: No
  Sender: FDA-Public Use
  Company Number: US-UCBSA-2015014576

PATIENT
  Age: 45 Year
  Sex: Male

DRUGS (1)
  1. VIMPAT [Suspect]
     Active Substance: LACOSAMIDE
     Indication: SEIZURE
     Dosage: 100MG/2 DAILY
     Dates: start: 20150406, end: 20150504

REACTIONS (3)
  - Hypersomnia [Unknown]
  - Fatigue [Unknown]
  - Anger [Recovered/Resolved]

NARRATIVE: CASE EVENT DATE: 2015
